FAERS Safety Report 7287308-X (Version None)
Quarter: 2011Q1

REPORT INFORMATION
  Report Type: 
  Country: None (occurrence: None)
  Receive Date: 20110112
  Receipt Date: 20110112
  Transmission Date: 20110831
  Serious: No
  Sender: FDA-Public Use
  Company Number: None

PATIENT

DRUGS (2)
  1. ELLENCE [Suspect]
     Indication: BREAST CANCER
  2. ERIBULIN (HAVALEN) [Suspect]
     Indication: BREAST CANCER

REACTIONS (3)
  - MEDICATION ERROR [None]
  - CIRCUMSTANCE OR INFORMATION CAPABLE OF LEADING TO MEDICATION ERROR [None]
  - DRUG NAME CONFUSION [None]
